FAERS Safety Report 25970308 (Version 1)
Quarter: 2025Q4

REPORT INFORMATION
  Report Type: Spontaneous
  Country: EU (occurrence: EU)
  Receive Date: 20251028
  Receipt Date: 20251028
  Transmission Date: 20260118
  Serious: Yes (Other)
  Sender: MDD OPERATIONS
  Company Number: EU-ZAMBON-2025000621

PATIENT
  Sex: Female

DRUGS (5)
  1. XADAGO [Suspect]
     Active Substance: SAFINAMIDE MESYLATE
     Indication: Parkinson^s disease
     Dosage: NOT PROVIDED
  2. ST. JOHN^S WORT [Suspect]
     Active Substance: ST. JOHN^S WORT
     Dosage: 1 DOSAGE FORM, SINGLE
     Route: 048
     Dates: start: 20251010, end: 20251010
  3. OPICAPONE [Concomitant]
     Active Substance: OPICAPONE
     Indication: Parkinson^s disease
     Dosage: 50 MILLIGRAM
  4. LEVODOPA [Concomitant]
     Active Substance: LEVODOPA
     Indication: Parkinson^s disease
     Dosage: NOT PROVIDED
  5. AMANTADINE [Concomitant]
     Active Substance: AMANTADINE
     Indication: Parkinson^s disease
     Dosage: NOT PROVIDED

REACTIONS (2)
  - Parkinson^s disease [Unknown]
  - Contraindicated product administered [Unknown]
